FAERS Safety Report 4298544-9 (Version None)
Quarter: 2004Q1

REPORT INFORMATION
  Report Type: 
  Country: None (occurrence: None)
  Receive Date: 20040218
  Receipt Date: 20040212
  Transmission Date: 20041129
  Serious: Yes (Other)
  Sender: FDA-Public Use
  Company Number: US-BRISTOL-MYERS SQUIBB COMPANY-12504593

PATIENT
  Sex: Female
  Weight: 68 kg

DRUGS (6)
  1. TEQUIN [Suspect]
     Indication: CHRONIC OBSTRUCTIVE AIRWAYS DISEASE
     Route: 042
     Dates: start: 20040203, end: 20040203
  2. CALCIUM [Concomitant]
  3. ZOCOR [Concomitant]
  4. SYNTHROID [Concomitant]
  5. ADVIL [Concomitant]
  6. ZYRTEC [Concomitant]

REACTIONS (2)
  - BLINDNESS [None]
  - COLD SWEAT [None]
